FAERS Safety Report 6572645-4 (Version None)
Quarter: 2010Q1

REPORT INFORMATION
  Report Type: 
  Country: None (occurrence: None)
  Receive Date: 20100205
  Receipt Date: 20100127
  Transmission Date: 20100710
  Serious: Yes (Other)
  Sender: FDA-Public Use
  Company Number: US-AMGEN-QUU388880

PATIENT
  Sex: Male

DRUGS (1)
  1. ARANESP [Suspect]
     Indication: DRUG USE FOR UNKNOWN INDICATION
     Dates: start: 20070101, end: 20091101

REACTIONS (2)
  - CARDIAC DISORDER [None]
  - HAEMOGLOBIN DECREASED [None]
